FAERS Safety Report 8084793-0 (Version None)
Quarter: 2012Q1

REPORT INFORMATION
  Report Type: 
  Country: None (occurrence: None)
  Receive Date: 20120128
  Receipt Date: 20110323
  Transmission Date: 20120608
  Serious: No
  Sender: FDA-Public Use
  Company Number: US-ABBOTT-11P-163-0714480-00

PATIENT
  Sex: Female
  Weight: 95.34 kg

DRUGS (4)
  1. LIALDA [Concomitant]
     Indication: CROHN'S DISEASE
     Dosage: 4 TABS/DAY
  2. HUMIRA [Suspect]
     Indication: CROHN'S DISEASE
     Dates: start: 20091001, end: 20100501
  3. ZYRTEC [Concomitant]
     Indication: HYPERSENSITIVITY
  4. HUMIRA [Suspect]
     Dates: start: 20100501

REACTIONS (5)
  - CROHN'S DISEASE [None]
  - SNEEZING [None]
  - LYMPHADENOPATHY [None]
  - RHINORRHOEA [None]
  - COUGH [None]
